FAERS Safety Report 5710448-0 (Version None)
Quarter: 2008Q2

REPORT INFORMATION
  Report Type: 
  Country: None (occurrence: None)
  Receive Date: 20080418
  Receipt Date: 20080411
  Transmission Date: 20081010
  Serious: Yes (Death)
  Sender: FDA-Public Use
  Company Number: CA-ABBOTT-08P-028-0436274-00

PATIENT
  Sex: Female
  Weight: 81 kg

DRUGS (7)
  1. BIAXIN XL [Suspect]
     Indication: ASTHMA
     Route: 048
     Dates: start: 20080131, end: 20080203
  2. PREDNISONE [Concomitant]
     Indication: DRUG USE FOR UNKNOWN INDICATION
     Route: 048
  3. PREDNISONE [Concomitant]
     Dates: end: 20080203
  4. FLUTICASONE PROPIONATE [Concomitant]
     Indication: DRUG USE FOR UNKNOWN INDICATION
     Route: 048
     Dates: end: 20080203
  5. FLUTICASONE PROPIONATE [Concomitant]
  6. ALBUTEROL [Concomitant]
     Indication: DRUG USE FOR UNKNOWN INDICATION
     Route: 048
     Dates: end: 20080203
  7. TIOTROPIUM BROMIDE [Concomitant]
     Indication: DRUG USE FOR UNKNOWN INDICATION
     Route: 048
     Dates: end: 20080203

REACTIONS (2)
  - ARRHYTHMIA [None]
  - CLOSTRIDIAL INFECTION [None]
